APPROVED DRUG PRODUCT: BENZTROPINE MESYLATE
Active Ingredient: BENZTROPINE MESYLATE
Strength: 1MG/ML
Dosage Form/Route: INJECTABLE;INJECTION
Application: A091525 | Product #001 | TE Code: AP
Applicant: NAVINTA LLC
Approved: Feb 5, 2013 | RLD: No | RS: No | Type: RX